FAERS Safety Report 8597103-7 (Version None)
Quarter: 2012Q3

REPORT INFORMATION
  Report Type: 
  Country: None (occurrence: None)
  Receive Date: 20120816
  Receipt Date: 20120807
  Transmission Date: 20120928
  Serious: No
  Sender: FDA-Public Use
  Company Number: US-BIOGENIDEC-2011BI037892

PATIENT
  Sex: Female

DRUGS (6)
  1. TYSABRI [Suspect]
     Route: 042
     Dates: start: 20100816, end: 20110805
  2. INTERFERON BETA-1A [Concomitant]
     Route: 030
  3. INTERFERON BETA-1A [Concomitant]
     Indication: MULTIPLE SCLEROSIS
     Route: 030
     Dates: end: 20050120
  4. TYSABRI [Suspect]
     Indication: MULTIPLE SCLEROSIS
     Route: 042
     Dates: start: 20070313, end: 20080821
  5. AMPYRA [Concomitant]
     Indication: GAIT DISTURBANCE
  6. TYSABRI [Suspect]
     Route: 042
     Dates: start: 20090714, end: 20100405

REACTIONS (8)
  - FATIGUE [None]
  - DRUG INEFFECTIVE [None]
  - CEREBRAL HAEMORRHAGE [None]
  - CONCUSSION [None]
  - LACERATION [None]
  - FACE INJURY [None]
  - FALL [None]
  - MALAISE [None]
